FAERS Safety Report 8509966-1 (Version None)
Quarter: 2012Q3

REPORT INFORMATION
  Report Type: 
  Country: None (occurrence: None)
  Receive Date: 20120713
  Receipt Date: 20120704
  Transmission Date: 20120928
  Serious: Yes (Other)
  Sender: FDA-Public Use
  Company Number: MX-ELI_LILLY_AND_COMPANY-MX201207001351

PATIENT
  Age: 76 Year
  Sex: Female
  Weight: 40 kg

DRUGS (1)
  1. FORTEO [Suspect]
     Dosage: 20 UG, QD
     Route: 058

REACTIONS (5)
  - SENILE DEMENTIA [None]
  - MEMORY IMPAIRMENT [None]
  - WEIGHT DECREASED [None]
  - HEPATIC NEOPLASM MALIGNANT [None]
  - SPEECH DISORDER [None]
